FAERS Safety Report 5200352-9 (Version None)
Quarter: 2006Q4

REPORT INFORMATION
  Report Type: 
  Country: None (occurrence: None)
  Receive Date: 20061016
  Receipt Date: 20060718
  Transmission Date: 20070319
  Serious: No
  Sender: FDA-Public Use
  Company Number: 2006SP002736

PATIENT
  Age: 73 Year
  Sex: Female

DRUGS (15)
  1. LUNESTA [Suspect]
     Indication: INSOMNIA
     Dosage: 3 MG;PRN;ORAL
     Route: 048
     Dates: start: 20060701
  2. HYZAAR [Concomitant]
  3. METOPROLOL SUCCINATE [Concomitant]
  4. LEVOXYL [Concomitant]
  5. CYTOMEL [Concomitant]
  6. NAPROXEN [Concomitant]
  7. OXYBUTYNIN [Concomitant]
  8. FOSAMAX [Concomitant]
  9. EPOETIN ALFA [Concomitant]
  10. FUROSEMIDE [Concomitant]
  11. POTASSIUM CHLORIDE [Concomitant]
  12. FOLIC ACID [Concomitant]
  13. VITAMIN CAP [Concomitant]
  14. CYANOCOBALAMIN [Concomitant]
  15. GLUCOSAMINE W/CHONDROITIN [Concomitant]

REACTIONS (1)
  - DYSGEUSIA [None]
